FAERS Safety Report 10155416 (Version 1)
Quarter: 2014Q2

REPORT INFORMATION
  Report Type: Spontaneous
  Country: CA (occurrence: None)
  Receive Date: 20140417
  Receipt Date: 20140417
  Transmission Date: 20141212
  Serious: No
  Sender: FDA-Public Use
  Company Number: CA-145498

PATIENT
  Age: 60 Year
  Sex: Female

DRUGS (1)
  1. VARIZIG [Suspect]
     Route: 058
     Dates: start: 20130128, end: 20130128

REACTIONS (4)
  - Abdominal pain [None]
  - Erythema [None]
  - Swelling [None]
  - Incorrect route of drug administration [None]
